FAERS Safety Report 15185568 (Version 6)
Quarter: 2018Q4

REPORT INFORMATION
  Report Type: Spontaneous
  Country: US (occurrence: US)
  Receive Date: 20180723
  Receipt Date: 20181106
  Transmission Date: 20190204
  Serious: Yes (Hospitalization, Other)
  Sender: FDA-Public Use
  Company Number: US-SHIRE-US201826841

PATIENT
  Age: 84 Year
  Sex: Female

DRUGS (1)
  1. VPRIV [Suspect]
     Active Substance: VELAGLUCERASE ALFA
     Indication: GAUCHER^S DISEASE
     Dosage: 2400 IU, 1X A MONTH
     Route: 042
     Dates: start: 20110310

REACTIONS (5)
  - Splenic infarction [Recovered/Resolved]
  - Back pain [Not Recovered/Not Resolved]
  - Sciatica [Unknown]
  - Haemoglobin decreased [Unknown]
  - Gait disturbance [Unknown]

NARRATIVE: CASE EVENT DATE: 20180708
